FAERS Safety Report 8609659-6 (Version None)
Quarter: 2012Q3

REPORT INFORMATION
  Report Type: 
  Country: None (occurrence: None)
  Receive Date: 20120821
  Receipt Date: 20120811
  Transmission Date: 20120928
  Serious: Yes (Hospitalization, Disabling)
  Sender: FDA-Public Use
  Company Number: US-ACTELION-A-NJ2012-66224

PATIENT
  Age: 78 Year
  Sex: Female

DRUGS (11)
  1. TRACLEER [Suspect]
     Dosage: UNK
     Route: 048
     Dates: start: 20120101
  2. PRAVASTAN [Concomitant]
  3. TRACLEER [Suspect]
     Indication: PULMONARY ARTERIAL HYPERTENSION
     Dosage: UNK
     Route: 048
     Dates: start: 20120201, end: 20120505
  4. POTASSIUM CHLORIDE [Concomitant]
  5. COUMADIN [Concomitant]
  6. TORSEMIDE [Concomitant]
  7. SYNTHROID [Concomitant]
  8. CARVEDILOL [Concomitant]
  9. TRACLEER [Suspect]
     Dosage: UNK
     Route: 048
     Dates: start: 20120524
  10. OXYCONTIN [Concomitant]
  11. COLCHICINE [Concomitant]

REACTIONS (4)
  - TUBULOINTERSTITIAL NEPHRITIS [None]
  - RENAL FAILURE CHRONIC [None]
  - RENAL FAILURE ACUTE [None]
  - DIALYSIS [None]
